FAERS Safety Report 5720239-2 (Version None)
Quarter: 2008Q2

REPORT INFORMATION
  Report Type: 
  Country: None (occurrence: None)
  Receive Date: 20080423
  Receipt Date: 20070706
  Transmission Date: 20081010
  Serious: Yes (Hospitalization)
  Sender: FDA-Public Use
  Company Number: 243233

PATIENT
  Age: 70 Year
  Sex: Male
  Weight: 76.3 kg

DRUGS (6)
  1. AVASTIN [Suspect]
     Indication: COLON CANCER METASTATIC
     Dosage: 573 MG, INTRAVENOUS
     Route: 042
     Dates: start: 20070611
  2. SYNTHROID [Concomitant]
  3. METOPOLOL (METOPROLOL TARTRATE) [Concomitant]
  4. PRILOSEC [Concomitant]
  5. COMPAZINE [Concomitant]
  6. AMBIEN [Concomitant]

REACTIONS (1)
  - CEREBRAL ISCHAEMIA [None]
